FAERS Safety Report 11853603 (Version 2)
Quarter: 2016Q4

REPORT INFORMATION
  Report Type: Spontaneous
  Country: US (occurrence: US)
  Receive Date: 20151219
  Receipt Date: 20161222
  Transmission Date: 20170206
  Serious: No
  Sender: FDA-Public Use
  Company Number: US-BAUSCH-BL-2015-018149

PATIENT
  Age: 60 Year
  Sex: Female

DRUGS (2)
  1. XENAZINE [Suspect]
     Active Substance: TETRABENAZINE
     Indication: BLEPHAROSPASM
     Route: 048
     Dates: start: 20150621
  2. XENAZINE [Suspect]
     Active Substance: TETRABENAZINE
     Indication: FACIAL NERVE DISORDER
     Route: 048
     Dates: start: 20150725

REACTIONS (3)
  - Off label use [Not Recovered/Not Resolved]
  - Nausea [Not Recovered/Not Resolved]
  - Fatigue [Not Recovered/Not Resolved]

NARRATIVE: CASE EVENT DATE: 20150725
